FAERS Safety Report 14413133 (Version 2)
Quarter: 2018Q1

REPORT INFORMATION
  Report Type: Spontaneous
  Country: US (occurrence: US)
  Receive Date: 20180119
  Receipt Date: 20180125
  Transmission Date: 20180509
  Serious: Yes (Other)
  Sender: FDA-Public Use
  Company Number: US-PFIZER INC-2018023845

PATIENT
  Age: 68 Year
  Sex: Female

DRUGS (1)
  1. METHOTREXATE SODIUM. [Suspect]
     Active Substance: METHOTREXATE SODIUM
     Indication: LANGERHANS^ CELL HISTIOCYTOSIS
     Dosage: UNK

REACTIONS (4)
  - Drug intolerance [Unknown]
  - Pancytopenia [Unknown]
  - Nausea [Unknown]
  - Malaise [Unknown]
